FAERS Safety Report 23334292 (Version 2)
Quarter: 2024Q3

REPORT INFORMATION
  Report Type: Report from Study
  Country: JP (occurrence: JP)
  Receive Date: 20231223
  Receipt Date: 20240806
  Transmission Date: 20241017
  Serious: Yes (Other)
  Sender: GENMAB
  Company Number: JP-GENMAB-2023-02389

PATIENT
  Age: 68 Year
  Sex: Male
  Weight: 47 kg

DRUGS (5)
  1. EPKINLY [Suspect]
     Active Substance: EPCORITAMAB-BYSP
     Indication: Diffuse large B-cell lymphoma refractory
     Dosage: 0.16 MILLIGRAM, SINGLE
     Route: 058
     Dates: start: 20231127, end: 20231127
  2. EPKINLY [Suspect]
     Active Substance: EPCORITAMAB-BYSP
     Dosage: 0.8 MILLIGRAM, SINGLE
     Route: 058
     Dates: start: 20231205, end: 20231205
  3. CORTICOTROPIN [Concomitant]
     Active Substance: CORTICOTROPIN
     Indication: Prophylaxis
     Dosage: UNK, ,AT THE TIME OF ADMINISTRATION OF EPKINLY
     Dates: start: 20231127, end: 20231205
  4. ANTIHISTAMINES NOS [Concomitant]
     Active Substance: ANTIHISTAMINES NOS
     Indication: Prophylaxis
     Dosage: UNK,AT THE TIME OF ADMINISTRATION OF EPKINLY
     Dates: start: 20231127, end: 20231205
  5. UNSPECIFIED INGREDIENT [Concomitant]
     Active Substance: UNSPECIFIED INGREDIENT
     Indication: Prophylaxis
     Dosage: UNK, ,AT THE TIME OF ADMINISTRATION OF EPKINLY
     Dates: start: 20231127, end: 20231205

REACTIONS (1)
  - Diffuse large B-cell lymphoma refractory [Unknown]

NARRATIVE: CASE EVENT DATE: 20231207
